FAERS Safety Report 6249027-8 (Version None)
Quarter: 2009Q2

REPORT INFORMATION
  Report Type: 
  Country: None (occurrence: None)
  Receive Date: 20090629
  Receipt Date: 20090618
  Transmission Date: 20091009
  Serious: Yes (Hospitalization)
  Sender: FDA-Public Use
  Company Number: JP-ASTRAZENECA-2008SE05746

PATIENT
  Age: 72 Year
  Sex: Male
  Weight: 75 kg

DRUGS (5)
  1. BLOPRESS [Suspect]
     Indication: HYPERTENSION
     Route: 048
     Dates: start: 20040501, end: 20081119
  2. BLOPRESS [Suspect]
     Route: 048
     Dates: start: 20081125, end: 20081204
  3. HALTHROW [Suspect]
     Route: 048
     Dates: start: 20081114, end: 20081117
  4. TETRAMIDE [Concomitant]
     Indication: DEPRESSION
     Route: 048
     Dates: start: 20081117
  5. RHYTHMY [Concomitant]
     Indication: INITIAL INSOMNIA
     Route: 048

REACTIONS (1)
  - DELIRIUM [None]
